FAERS Safety Report 14952853 (Version 1)
Quarter: 2018Q2

REPORT INFORMATION
  Report Type: Spontaneous
  Country: US (occurrence: US)
  Receive Date: 20180530
  Receipt Date: 20180530
  Transmission Date: 20180711
  Serious: No
  Sender: FDA-Public Use
  Company Number: US-BIODELIVERY SCIENCES INTERNATIONAL-2018BDSI0152

PATIENT
  Sex: Male
  Weight: 95.34 kg

DRUGS (7)
  1. BUPRENORPHINE. [Suspect]
     Active Substance: BUPRENORPHINE
     Indication: PAIN
     Route: 002
  2. BUPRENORPHINE. [Suspect]
     Active Substance: BUPRENORPHINE
     Dosage: UNKNOWN
     Route: 002
  3. FLUOXETINE HYDROCHLORIDE. [Concomitant]
     Active Substance: FLUOXETINE HYDROCHLORIDE
     Indication: DEPRESSION
     Route: 048
  4. BUPRENORPHINE. [Suspect]
     Active Substance: BUPRENORPHINE
     Dosage: UNKNOWN
     Route: 002
  5. NO DRUG NAME [Concomitant]
     Indication: VITAMIN SUPPLEMENTATION
     Dosage: AS NECESSARY; DOSE UNKNOWN
     Route: 048
  6. ALPRAZOLAM. [Concomitant]
     Active Substance: ALPRAZOLAM
     Indication: PRODUCT USED FOR UNKNOWN INDICATION
     Route: 048
  7. BUPRENORPHINE. [Suspect]
     Active Substance: BUPRENORPHINE
     Dosage: UNKNOWN
     Route: 002

REACTIONS (2)
  - Dental caries [Not Recovered/Not Resolved]
  - Teeth brittle [Not Recovered/Not Resolved]

NARRATIVE: CASE EVENT DATE: 2015
